FAERS Safety Report 7099044-3 (Version None)
Quarter: 2010Q4

REPORT INFORMATION
  Report Type: 
  Country: None (occurrence: None)
  Receive Date: 20101112
  Receipt Date: 20101101
  Transmission Date: 20110411
  Serious: Yes (Hospitalization, Disabling, Other)
  Sender: FDA-Public Use
  Company Number: PHHY2010US64796

PATIENT
  Sex: Female

DRUGS (4)
  1. RECLAST [Suspect]
     Indication: OSTEOPOROSIS
     Dosage: 5 MG YEARLY
     Route: 042
     Dates: start: 20100924
  2. LISINOPRIL [Concomitant]
     Indication: HYPERTENSION
     Dosage: 10 MG, DAILY
     Route: 048
  3. NEXIUM [Concomitant]
     Dosage: 40 MG DAILY
     Route: 048
  4. ALLEGRA [Concomitant]

REACTIONS (4)
  - ABASIA [None]
  - DIPLEGIA [None]
  - MOVEMENT DISORDER [None]
  - MUSCULAR WEAKNESS [None]
